FAERS Safety Report 8069180-3 (Version None)
Quarter: 2012Q1

REPORT INFORMATION
  Report Type: 
  Country: None (occurrence: None)
  Receive Date: 20120125
  Receipt Date: 20120112
  Transmission Date: 20120608
  Serious: Yes (Other)
  Sender: FDA-Public Use
  Company Number: US-CELGENEUS-163-CDMPH-12012134

PATIENT
  Sex: Male

DRUGS (2)
  1. DEXMETHYLPHENIDATE HYDROCHLORIDE [Suspect]
     Dosage: 30 MILLIGRAM
     Route: 065
  2. DEXMETHYLPHENIDATE HYDROCHLORIDE [Suspect]
     Dosage: 60 MILLIGRAM
     Route: 065

REACTIONS (2)
  - DYSTONIA [None]
  - LETHARGY [None]
